FAERS Safety Report 8146569-5 (Version None)
Quarter: 2012Q1

REPORT INFORMATION
  Report Type: 
  Country: None (occurrence: None)
  Receive Date: 20120217
  Receipt Date: 20110810
  Transmission Date: 20120608
  Serious: No
  Sender: FDA-Public Use
  Company Number: US-ABBOTT-11P-163-0841470-00

PATIENT
  Sex: Female
  Weight: 99.88 kg

DRUGS (6)
  1. CITRACAL [Concomitant]
     Indication: MINERAL SUPPLEMENTATION
     Dates: start: 20110717
  2. HYDROCHLOROTHIAZIDE HCT [Concomitant]
     Indication: HYPERTENSION
     Route: 048
  3. AMLODIPINE [Concomitant]
     Indication: HYPERTENSION
  4. ASPIRIN [Concomitant]
     Indication: PRODUCT USED FOR UNKNOWN INDICATION
     Dosage: TAKES 30 MINUTES BEFORE SIMCOR
     Route: 048
  5. SIMCOR [Suspect]
     Indication: BLOOD CHOLESTEROL INCREASED
     Dosage: 500/20MG, IN THE MORNING
     Route: 048
     Dates: start: 20110714
  6. FEMHRT [Concomitant]
     Indication: HORMONE REPLACEMENT THERAPY

REACTIONS (4)
  - HOT FLUSH [None]
  - PRURITUS GENERALISED [None]
  - FEELING HOT [None]
  - PRURITUS [None]
